FAERS Safety Report 10014012 (Version 1)
Quarter: 2014Q1

REPORT INFORMATION
  Report Type: Report from Study
  Country: FR (occurrence: FR)
  Receive Date: 20140317
  Receipt Date: 20140317
  Transmission Date: 20141002
  Serious: Yes (Hospitalization)
  Sender: FDA-Public Use
  Company Number: FR-ROCHE-1359514

PATIENT
  Sex: Female

DRUGS (8)
  1. RITUXIMAB [Suspect]
     Indication: RHEUMATOID ARTHRITIS
     Route: 042
     Dates: start: 20081121, end: 20100618
  2. TOCILIZUMAB [Suspect]
     Indication: RHEUMATOID ARTHRITIS
     Route: 065
     Dates: start: 20110919
  3. METHOTREXATE [Concomitant]
     Route: 065
  4. METHOTREXATE [Concomitant]
     Route: 065
     Dates: start: 20091231
  5. CORTANCYL [Concomitant]
     Route: 065
  6. CORTANCYL [Concomitant]
     Route: 065
  7. ORENCIA [Concomitant]
     Route: 065
     Dates: start: 20101126
  8. BENLYSTA [Concomitant]

REACTIONS (7)
  - Prurigo [Not Recovered/Not Resolved]
  - Synovial rupture [Recovered/Resolved]
  - Pemphigoid [Not Recovered/Not Resolved]
  - Abscess [Recovered/Resolved]
  - Furuncle [Not Recovered/Not Resolved]
  - Keratitis [Recovered/Resolved]
  - Skin lesion [Recovered/Resolved]
